FAERS Safety Report 14824825 (Version 1)
Quarter: 2018Q2

REPORT INFORMATION
  Report Type: Spontaneous
  Country: FI (occurrence: FI)
  Receive Date: 20180430
  Receipt Date: 20180430
  Transmission Date: 20180711
  Serious: Yes (Other)
  Sender: FDA-Public Use
  Company Number: PHHY2017FI202587

PATIENT
  Age: 73 Year
  Sex: Female

DRUGS (6)
  1. MAREVAN [Concomitant]
     Active Substance: WARFARIN SODIUM
     Dosage: 3 MG, QD (ON THURSDAYS)
     Route: 065
     Dates: start: 2009
  2. MULTAQ [Suspect]
     Active Substance: DRONEDARONE
     Indication: ATRIAL FIBRILLATION
     Dosage: 800 MG, QD
     Route: 065
     Dates: start: 201007
  3. PRIMASPAN [Concomitant]
     Active Substance: ASPIRIN
     Indication: ATRIAL FIBRILLATION
     Dosage: UNK (STARTED LONG BEFORE WARFARIN SODIUM WAS INITIATED)
     Route: 065
  4. PROPRAL [Concomitant]
     Indication: PRODUCT USED FOR UNKNOWN INDICATION
     Dosage: UNK UNK, TID (1-4 TABLETS WHEN NEEDED )
     Route: 065
     Dates: start: 2010, end: 2017
  5. MAREVAN [Concomitant]
     Active Substance: WARFARIN SODIUM
     Indication: ATRIAL FIBRILLATION
     Dosage: 4.5 MG, QD (1.5 TABLET PER DAY, EXCEPT THURSDAYS)
     Route: 065
     Dates: start: 2009
  6. BISOPROLOL [Suspect]
     Active Substance: BISOPROLOL
     Indication: ATRIAL FIBRILLATION
     Dosage: 0.5 DF, BIW (0.5-1 TABLET, USED APPROXIMATELY HALF TABLET TWICE A WEEK)
     Route: 065
     Dates: start: 20170324

REACTIONS (4)
  - Hypotension [Not Recovered/Not Resolved]
  - Drug ineffective [Unknown]
  - Arrhythmia [Not Recovered/Not Resolved]
  - Heart rate decreased [Not Recovered/Not Resolved]

NARRATIVE: CASE EVENT DATE: 2016
